FAERS Safety Report 26048888 (Version 1)
Quarter: 2025Q4

REPORT INFORMATION
  Report Type: Spontaneous
  Country: EU (occurrence: EU)
  Receive Date: 20251115
  Receipt Date: 20251115
  Transmission Date: 20260119
  Serious: Yes (Other)
  Sender: ABBVIE
  Company Number: EU-ABBVIE-6544519

PATIENT
  Age: 67 Year
  Sex: Female

DRUGS (4)
  1. VENETOCLAX [Suspect]
     Active Substance: VENETOCLAX
     Indication: Chronic lymphocytic leukaemia
     Dosage: DOSE WAS REDUCED TO 200 MG
     Route: 048
     Dates: end: 202502
  2. VENETOCLAX [Suspect]
     Active Substance: VENETOCLAX
     Indication: Chronic lymphocytic leukaemia
     Route: 048
  3. IBRUTINIB [Suspect]
     Active Substance: IBRUTINIB
     Indication: Chronic lymphocytic leukaemia
     Route: 048
  4. IBRUTINIB [Suspect]
     Active Substance: IBRUTINIB
     Indication: Chronic lymphocytic leukaemia
     Dosage: CHANGED TO 280MG
     Route: 048

REACTIONS (5)
  - Atrial fibrillation [Recovered/Resolved]
  - Cytopenia [Recovered/Resolved]
  - Haematuria [Unknown]
  - Hypertension [Recovered/Resolved]
  - Lymphadenopathy [Unknown]
